FAERS Safety Report 16415232 (Version 6)
Quarter: 2021Q4

REPORT INFORMATION
  Report Type: Spontaneous
  Country: US (occurrence: US)
  Receive Date: 20190611
  Receipt Date: 20211105
  Transmission Date: 20220303
  Serious: No
  Sender: FDA-Public Use
  Company Number: US-PFIZER INC-2019247144

PATIENT
  Age: 71 Year
  Sex: Female

DRUGS (2)
  1. LYRICA [Suspect]
     Active Substance: PREGABALIN
     Dosage: 100 MG, 1X/DAY (EVERY MORNING, TOTAL OF 250 MG PER DAY)
     Route: 048
  2. LYRICA [Suspect]
     Active Substance: PREGABALIN
     Dosage: 150 MG, 1X/DAY (EVERY BEDTIME, TOTAL OF 250 MG PER DAY)
     Route: 048

REACTIONS (4)
  - Withdrawal syndrome [Unknown]
  - Sleep disorder [Unknown]
  - Fibromyalgia [Unknown]
  - Intentional product misuse [Unknown]
